FAERS Safety Report 19406588 (Version 1)
Quarter: 2021Q2

REPORT INFORMATION
  Report Type: Spontaneous
  Country: MX (occurrence: MX)
  Receive Date: 20210611
  Receipt Date: 20210611
  Transmission Date: 20210717
  Serious: Yes (Hospitalization)
  Sender: FDA-Public Use
  Company Number: MX-TAKEDA-2021TUS036483

PATIENT
  Age: 58 Year
  Sex: Male
  Weight: 60 kg

DRUGS (2)
  1. VELCADE [Suspect]
     Active Substance: BORTEZOMIB
     Indication: PLASMA CELL MYELOMA
     Dosage: UNK
     Route: 065
  2. DARZALEX [Concomitant]
     Active Substance: DARATUMUMAB
     Indication: PLASMA CELL MYELOMA
     Dosage: UNK
     Route: 065

REACTIONS (2)
  - Bone neoplasm [Not Recovered/Not Resolved]
  - Oral neoplasm [Not Recovered/Not Resolved]

NARRATIVE: CASE EVENT DATE: 20210522
